FAERS Safety Report 8756665 (Version 1)
Quarter: 2012Q4

REPORT INFORMATION
  Report Type: 
  Country: US (occurrence: US)
  Receive Date: 20120828
  Receipt Date: 20120828
  Transmission Date: 20130627
  Serious: Yes (Other)
  Sender: FDA-Public Use
  Company Number: US-BAYER-2012-088413

PATIENT
  Sex: Female

DRUGS (2)
  1. AVELOX IV [Suspect]
     Indication: TOOTHACHE
     Dosage: 400 mg, QD
     Route: 048
  2. ADVIL [Concomitant]

REACTIONS (6)
  - Amnesia [None]
  - Urticaria [None]
  - Erythema [None]
  - Hypersensitivity [None]
  - Pharyngeal oedema [None]
  - Paraesthesia oral [None]
